FAERS Safety Report 23244693 (Version 2)
Quarter: 2023Q4

REPORT INFORMATION
  Report Type: Report from Study
  Country: CH (occurrence: CH)
  Receive Date: 20231130
  Receipt Date: 20231222
  Transmission Date: 20240110
  Serious: Yes (Death, Hospitalization, Other)
  Sender: FDA-Public Use
  Company Number: CH-ABBVIE-5488415

PATIENT
  Age: 83 Year
  Sex: Male

DRUGS (6)
  1. CARBIDOPA\LEVODOPA [Suspect]
     Active Substance: CARBIDOPA\LEVODOPA
     Indication: Parkinson^s disease
     Dosage: MD: 0.2 ML, CRD: 1.5 ML/H, ED: 2.5  ML?FREQUENCY TEXT: 16H THERAPY,
     Route: 050
     Dates: start: 20231004, end: 202311
  2. CARBIDOPA\LEVODOPA [Suspect]
     Active Substance: CARBIDOPA\LEVODOPA
     Route: 050
     Dates: start: 20140113
  3. Quetiapine (Sequase) [Concomitant]
     Indication: Parkinson^s disease
     Dosage: FREQUENCY TEXT: 0-0-6-0
  4. Zolpidemi tartras (Zolpidem) [Concomitant]
     Indication: Parkinson^s disease
     Dosage: FREQUENCY TEXT: 0-0-0-2
  5. ROSUVASTATIN [Concomitant]
     Active Substance: ROSUVASTATIN
     Indication: Coronary artery disease
     Dosage: FREQUENCY TEXT: 1-0-0-0
  6. ASPIRIN [Concomitant]
     Active Substance: ASPIRIN
     Indication: Coronary artery disease
     Dosage: FREQUENCY TEXT: 1-0-0-0

REACTIONS (10)
  - Sepsis [Fatal]
  - Pneumonia aspiration [Fatal]
  - Bedridden [Not Recovered/Not Resolved]
  - Respiratory disorder [Unknown]
  - Device issue [Not Recovered/Not Resolved]
  - Acute respiratory distress syndrome [Fatal]
  - COVID-19 [Unknown]
  - Oxygen saturation decreased [Unknown]
  - Endotracheal intubation [Unknown]
  - General physical health deterioration [Unknown]

NARRATIVE: CASE EVENT DATE: 20231101
